FAERS Safety Report 13347722 (Version 1)
Quarter: 2017Q1

REPORT INFORMATION
  Report Type: Spontaneous
  Country: US (occurrence: US)
  Receive Date: 20170317
  Receipt Date: 20170317
  Transmission Date: 20170428
  Serious: No
  Sender: FDA-Public Use
  Company Number: US-MEDA-2017030008

PATIENT
  Sex: Male
  Weight: 74 kg

DRUGS (1)
  1. ROWASA [Suspect]
     Active Substance: MESALAMINE
     Indication: COLITIS ULCERATIVE
     Route: 054

REACTIONS (2)
  - Burning sensation [Recovered/Resolved]
  - Rash pruritic [Recovered/Resolved]
